FAERS Safety Report 25214624 (Version 1)
Quarter: 2025Q2

REPORT INFORMATION
  Report Type: Spontaneous
  Country: CN (occurrence: CN)
  Receive Date: 20250418
  Receipt Date: 20250418
  Transmission Date: 20250717
  Serious: Yes (Hospitalization)
  Sender: ABBVIE
  Company Number: CN-MLMSERVICE-20250331-PI461565-00102-1

PATIENT
  Age: 76 Year
  Weight: 54 kg

DRUGS (5)
  1. CITALOPRAM HYDROBROMIDE [Suspect]
     Active Substance: CITALOPRAM HYDROBROMIDE
     Indication: Depression
     Dosage: ADJUSTED TO 40MG DAILY
     Route: 048
  2. CITALOPRAM HYDROBROMIDE [Suspect]
     Active Substance: CITALOPRAM HYDROBROMIDE
     Indication: Depression
     Dosage: ADMINISTERED EVERY MORNING AT 10:30 A.M
     Route: 048
  3. RIFAMPIN [Interacting]
     Active Substance: RIFAMPIN
     Indication: Tuberculosis of central nervous system
     Dosage: 0.6 GRAM
     Route: 048
  4. RIFAPENTINE [Interacting]
     Active Substance: RIFAPENTINE
     Indication: Tuberculosis of central nervous system
     Dosage: STARTED ON THE THIRD DAY
     Route: 048
  5. ETHAMBUTOL [Concomitant]
     Active Substance: ETHAMBUTOL HYDROCHLORIDE
     Indication: Tuberculosis of central nervous system
     Dosage: 1 GRAM
     Route: 048

REACTIONS (3)
  - Antidepressant drug level below therapeutic [Recovered/Resolved]
  - Depressive symptom [Recovered/Resolved]
  - Drug interaction [Not Recovered/Not Resolved]
